FAERS Safety Report 8965362 (Version 2)
Quarter: 2013Q4

REPORT INFORMATION
  Report Type: Spontaneous
  Country: FR (occurrence: FR)
  Receive Date: 20121213
  Receipt Date: 20131008
  Transmission Date: 20140711
  Serious: Yes (Hospitalization, Other)
  Sender: FDA-Public Use
  Company Number: FR-ELI_LILLY_AND_COMPANY-FR201212000232

PATIENT
  Age: 84 Year
  Sex: Female

DRUGS (8)
  1. ZYPREXA [Suspect]
     Dosage: 5 MG, QD
     Route: 048
     Dates: end: 201202
  2. EXELON [Suspect]
     Dosage: 4500 UG, BID
     Route: 048
     Dates: end: 201202
  3. SEROPRAM [Suspect]
     Dosage: 20 MG, QD
     Route: 048
     Dates: end: 201202
  4. KARDEGIC [Concomitant]
     Dosage: 75 MG, UNKNOWN
  5. COAPROVEL [Concomitant]
  6. LOVENOX [Concomitant]
     Dosage: UNK IU, UNK
  7. IMOVANE [Concomitant]
     Dosage: 7.5 MG, UNKNOWN
  8. PROTELOS [Concomitant]
     Dosage: 2 G, UNKNOWN

REACTIONS (6)
  - Fracture [Unknown]
  - Dysarthria [Recovered/Resolved]
  - Intermittent claudication [Recovering/Resolving]
  - Extrapyramidal disorder [Recovered/Resolved]
  - Muscle rigidity [Recovered/Resolved]
  - Resting tremor [Recovered/Resolved]
